APPROVED DRUG PRODUCT: ASCOR
Active Ingredient: ASCORBIC ACID
Strength: 25,000MG/50ML (500MG/ML)
Dosage Form/Route: SOLUTION;INTRAVENOUS
Application: N209112 | Product #001 | TE Code: AP
Applicant: MCGUFF PHARMACEUTICALS INC
Approved: Oct 2, 2017 | RLD: Yes | RS: Yes | Type: RX